FAERS Safety Report 6716890-3 (Version None)
Quarter: 2010Q2

REPORT INFORMATION
  Report Type: 
  Country: None (occurrence: None)
  Receive Date: 20100504
  Receipt Date: 20100415
  Transmission Date: 20101027
  Serious: Yes (Other)
  Sender: FDA-Public Use
  Company Number: 7001705

PATIENT
  Age: 2 Year
  Sex: Female

DRUGS (1)
  1. SAIZEN [Suspect]
     Dosage: 0.4 MG
     Dates: start: 20091027

REACTIONS (5)
  - ASTHENIA [None]
  - BLOOD GLUCOSE DECREASED [None]
  - CONVULSION [None]
  - DRUG DOSE OMISSION [None]
  - DYSPNOEA [None]
